FAERS Safety Report 20787280 (Version 1)
Quarter: 2022Q2

REPORT INFORMATION
  Report Type: Spontaneous
  Country: US (occurrence: US)
  Receive Date: 20220505
  Receipt Date: 20220505
  Transmission Date: 20220720
  Serious: No
  Sender: FDA-Public Use
  Company Number: US-SANOFI-01087616

PATIENT
  Age: 65 Year
  Sex: Female

DRUGS (3)
  1. AVAPRO [Suspect]
     Active Substance: IRBESARTAN
     Dosage: 225MG
  2. AVAPRO [Suspect]
     Active Substance: IRBESARTAN
     Dosage: 150 MG
  3. AVAPRO [Suspect]
     Active Substance: IRBESARTAN
     Dosage: 75 MG

REACTIONS (1)
  - Wrong technique in product usage process [Unknown]
